FAERS Safety Report 5408244-7 (Version None)
Quarter: 2007Q3

REPORT INFORMATION
  Report Type: 
  Country: None (occurrence: None)
  Receive Date: 20070806
  Receipt Date: 20070806
  Transmission Date: 20080115
  Serious: Yes (Hospitalization)
  Sender: FDA-Public Use
  Company Number: None

PATIENT
  Age: 68 Year
  Sex: Female
  Weight: 75.8 kg

DRUGS (2)
  1. FLUOROURACIL [Suspect]
     Indication: SQUAMOUS CELL CARCINOMA
     Dosage: 1086 MG CONTINUOUS 24 HOUR INTRAVENOUS DRIP
     Route: 041
     Dates: start: 20060403, end: 20060406
  2. DOCETAXEL [Suspect]
     Indication: SQUAMOUS CELL CARCINOMA
     Dosage: 45 MG 30 MIN INTRAVENOUS DRIP
     Route: 041
     Dates: start: 20060404, end: 20060404

REACTIONS (1)
  - PNEUMONIA ASPIRATION [None]
